FAERS Safety Report 23969427 (Version 2)
Quarter: 2024Q3

REPORT INFORMATION
  Report Type: Report from Study
  Country: CA (occurrence: CA)
  Receive Date: 20240612
  Receipt Date: 20240725
  Transmission Date: 20241016
  Serious: Yes (Hospitalization)
  Sender: BIOGEN
  Company Number: CA-BIOGEN-2024BI01268937

PATIENT
  Age: 56 Year
  Sex: Female

DRUGS (2)
  1. DALFAMPRIDINE [Suspect]
     Active Substance: DALFAMPRIDINE
     Indication: Multiple sclerosis
     Route: 050
     Dates: start: 20130114, end: 20130320
  2. DALFAMPRIDINE [Suspect]
     Active Substance: DALFAMPRIDINE
     Route: 050
     Dates: start: 20190709

REACTIONS (1)
  - Pain [Not Recovered/Not Resolved]

NARRATIVE: CASE EVENT DATE: 20240603
